FAERS Safety Report 11021359 (Version 1)
Quarter: 2015Q2

REPORT INFORMATION
  Report Type: Spontaneous
  Country: GB (occurrence: GB)
  Receive Date: 20150413
  Receipt Date: 20150413
  Transmission Date: 20150821
  Serious: Yes (Hospitalization)
  Sender: FDA-Public Use
  Company Number: GB-ACTELION-A-CH2015-116074

PATIENT
  Age: 33 Year
  Sex: Female
  Weight: 60 kg

DRUGS (7)
  1. SILDENAFIL. [Suspect]
     Active Substance: SILDENAFIL
     Indication: PULMONARY ARTERIAL HYPERTENSION
     Dosage: 800 MG, UNK
     Route: 048
     Dates: start: 20150406, end: 20150406
  2. WARFARIN [Concomitant]
     Active Substance: WARFARIN
     Route: 048
  3. TRACLEER [Suspect]
     Active Substance: BOSENTAN\BOSENTAN MONOHYDRATE
     Indication: PULMONARY ARTERIAL HYPERTENSION
     Dosage: 14000 MG, UNK
     Route: 048
     Dates: start: 20150406, end: 20150406
  4. TRACLEER [Suspect]
     Active Substance: BOSENTAN\BOSENTAN MONOHYDRATE
     Dosage: 125 MG, BID
     Route: 048
     Dates: end: 20150406
  5. TARGINACT [Concomitant]
     Active Substance: NALOXONE HYDROCHLORIDE\OXYCODONE HYDROCHLORIDE
     Dosage: 40 MG, UNK
  6. ILOPROST [Concomitant]
     Active Substance: ILOPROST
     Dosage: 600 MCG, QD
  7. SILDENAFIL. [Suspect]
     Active Substance: SILDENAFIL
     Dosage: 50 MG, TID
     Route: 048

REACTIONS (2)
  - Intentional overdose [Not Recovered/Not Resolved]
  - Suicide attempt [Not Recovered/Not Resolved]

NARRATIVE: CASE EVENT DATE: 20150406
